FAERS Safety Report 25301034 (Version 1)
Quarter: 2025Q2

REPORT INFORMATION
  Report Type: Spontaneous
  Country: US (occurrence: US)
  Receive Date: 20250512
  Receipt Date: 20250512
  Transmission Date: 20250716
  Serious: Yes (Life-Threatening, Hospitalization)
  Sender: MYLAN
  Company Number: US-MYLANLABS-2025M1039745

PATIENT
  Age: 17 Year
  Sex: Female

DRUGS (8)
  1. METHIMAZOLE [Suspect]
     Active Substance: METHIMAZOLE
     Indication: Graves^ disease
     Dosage: 15 MILLIGRAM, BID
  2. METHIMAZOLE [Suspect]
     Active Substance: METHIMAZOLE
     Dosage: 15 MILLIGRAM, BID
     Route: 065
  3. METHIMAZOLE [Suspect]
     Active Substance: METHIMAZOLE
     Dosage: 15 MILLIGRAM, BID
     Route: 065
  4. METHIMAZOLE [Suspect]
     Active Substance: METHIMAZOLE
     Dosage: 15 MILLIGRAM, BID
  5. ATENOLOL [Concomitant]
     Active Substance: ATENOLOL
     Indication: Graves^ disease
     Dosage: 25 MILLIGRAM, QD
  6. ATENOLOL [Concomitant]
     Active Substance: ATENOLOL
     Dosage: 25 MILLIGRAM, QD
     Route: 065
  7. ATENOLOL [Concomitant]
     Active Substance: ATENOLOL
     Dosage: 25 MILLIGRAM, QD
     Route: 065
  8. ATENOLOL [Concomitant]
     Active Substance: ATENOLOL
     Dosage: 25 MILLIGRAM, QD

REACTIONS (4)
  - Agranulocytosis [Recovered/Resolved]
  - Septic shock [Recovered/Resolved]
  - Streptococcal sepsis [Recovered/Resolved]
  - Urticaria [Recovering/Resolving]
